FAERS Safety Report 7867439-3 (Version None)
Quarter: 2011Q4

REPORT INFORMATION
  Report Type: 
  Country: None (occurrence: None)
  Receive Date: 20111028
  Receipt Date: 20111021
  Transmission Date: 20120403
  Serious: Yes (Other)
  Sender: FDA-Public Use
  Company Number: US-ABBOTT-11P-163-0867915-00

PATIENT
  Age: 82 Year
  Sex: Female

DRUGS (7)
  1. LASIX [Concomitant]
     Indication: CARDIAC FAILURE CONGESTIVE
  2. NIACIN [Concomitant]
     Indication: VITAMIN SUPPLEMENTATION
  3. DIGOXIN [Concomitant]
     Indication: CARDIAC DISORDER
  4. WARFARIN SODIUM [Concomitant]
     Indication: ATRIAL FIBRILLATION
  5. COREG [Concomitant]
     Indication: CARDIAC DISORDER
     Dosage: 6.75MG AM 12.5MG HS
  6. VITAMIN D [Concomitant]
     Indication: VITAMIN SUPPLEMENTATION
  7. HUMIRA [Suspect]
     Indication: RHEUMATOID ARTHRITIS
     Route: 058
     Dates: start: 20040101

REACTIONS (6)
  - CARDIAC FAILURE CONGESTIVE [None]
  - SUBCUTANEOUS ABSCESS [None]
  - CYST [None]
  - BACK PAIN [None]
  - DYSPNOEA [None]
  - FATIGUE [None]
